FAERS Safety Report 6360757-X (Version None)
Quarter: 2009Q3

REPORT INFORMATION
  Report Type: 
  Country: None (occurrence: None)
  Receive Date: 20090918
  Receipt Date: 20090914
  Transmission Date: 20100115
  Serious: Yes (Death)
  Sender: FDA-Public Use
  Company Number: JP-JNJFOC-20090905344

PATIENT
  Age: 89 Year
  Sex: Female

DRUGS (2)
  1. LEVOFLOXACIN [Suspect]
     Route: 048
  2. LEVOFLOXACIN [Suspect]
     Indication: URINARY TRACT INFECTION
     Route: 048

REACTIONS (1)
  - INTERSTITIAL LUNG DISEASE [None]
